FAERS Safety Report 14226735 (Version 1)
Quarter: 2017Q4

REPORT INFORMATION
  Report Type: Spontaneous
  Country: JP (occurrence: JP)
  Receive Date: 20171127
  Receipt Date: 20171127
  Transmission Date: 20180321
  Serious: Yes (Other)
  Sender: FDA-Public Use
  Company Number: JP-TEVA-2017-JP-826080

PATIENT
  Age: 76 Year
  Sex: Male

DRUGS (1)
  1. METHOTREXATE. [Suspect]
     Active Substance: METHOTREXATE
     Indication: RHEUMATOID ARTHRITIS
     Dosage: 4-8 MG/WEEK; 1328MG TOTAL DOSE
     Route: 065
     Dates: start: 201111, end: 2016

REACTIONS (1)
  - Diffuse large B-cell lymphoma [Recovered/Resolved]
